FAERS Safety Report 11520797 (Version 1)
Quarter: 2015Q3

REPORT INFORMATION
  Report Type: Report from Study
  Country: BR (occurrence: BR)
  Receive Date: 20150918
  Receipt Date: 20150918
  Transmission Date: 20151125
  Serious: Yes (Other)
  Sender: FDA-Public Use
  Company Number: PHHY2015BR109413

PATIENT
  Sex: Female
  Weight: 80 kg

DRUGS (12)
  1. CALTRATE WITH VITAMIN D [Concomitant]
     Active Substance: CALCIUM CARBONATE\CHOLECALCIFEROL
     Indication: CALCIUM DEFICIENCY
     Dosage: 600 MG, BID
     Route: 065
  2. SERTRALINE [Concomitant]
     Active Substance: SERTRALINE HYDROCHLORIDE
     Indication: DEPRESSION
     Dosage: 1 DF, QD
     Route: 048
  3. HYDROCHLOROTHIAZIDE. [Concomitant]
     Active Substance: HYDROCHLOROTHIAZIDE
     Indication: PRODUCT USED FOR UNKNOWN INDICATION
     Dosage: UNK
     Route: 065
  4. DAFLON                             /01026201/ [Concomitant]
     Active Substance: DIOSMIN\HESPERIDIN
     Indication: PRODUCT USED FOR UNKNOWN INDICATION
     Dosage: 500 MG, UNK
     Route: 065
  5. LINSEED OIL [Concomitant]
     Active Substance: LINSEED OIL
     Indication: PRODUCT USED FOR UNKNOWN INDICATION
     Dosage: 500 MG, BID
     Route: 065
  6. ONBREZ [Suspect]
     Active Substance: INDACATEROL
     Indication: EMPHYSEMA
     Dosage: 1 DF, (1 CAPSULE) QD
     Route: 055
  7. AEROLIN [Suspect]
     Active Substance: ALBUTEROL
     Indication: EMPHYSEMA
     Dosage: 100 MG, 4 TIMES A DAY 2 INHALATION, QID
     Route: 055
  8. LOSARTAN. [Concomitant]
     Active Substance: LOSARTAN
     Indication: BLOOD PRESSURE INCREASED
     Dosage: 2 DF, QD
     Route: 048
  9. DONAREN [Concomitant]
     Active Substance: TRAZODONE HYDROCHLORIDE
     Indication: SLEEP DISORDER
     Dosage: 1 DF, QD
     Route: 048
  10. MIFLASONA [Suspect]
     Active Substance: BECLOMETHASONE DIPROPIONATE
     Indication: EMPHYSEMA
     Dosage: 200 MG, QID (4 CAPSULES A DAY)
     Route: 048
  11. SEEBRI BREEZHALER [Suspect]
     Active Substance: GLYCOPYRROLATE
     Indication: EMPHYSEMA
     Dosage: 50 MG, QD
     Route: 055
     Dates: start: 201507
  12. KETOROLAC [Concomitant]
     Active Substance: KETOROLAC\KETOROLAC TROMETHAMINE
     Indication: PAIN
     Dosage: UNK
     Route: 065

REACTIONS (4)
  - Dizziness [Recovering/Resolving]
  - Breast mass [Unknown]
  - Fall [Recovering/Resolving]
  - Lumbar vertebral fracture [Unknown]
